FAERS Safety Report 6895101-2 (Version None)
Quarter: 2010Q3

REPORT INFORMATION
  Report Type: 
  Country: None (occurrence: None)
  Receive Date: 20100708
  Receipt Date: 20090925
  Transmission Date: 20110219
  Serious: Yes (Hospitalization)
  Sender: FDA-Public Use
  Company Number: 2009260592

PATIENT
  Age: 43 Year
  Sex: Female
  Weight: 77 kg

DRUGS (6)
  1. CHANTIX (VARENCLINE TARTRATE) FILM-COATED TABLET [Suspect]
     Indication: SMOKING CESSATION THERAPY
     Dosage: 0.5 MG, DAILY, ORAL
     Route: 048
     Dates: start: 20090224, end: 20090225
  2. METHYLPREDNISOLONE [Suspect]
     Indication: ASTHMA
     Dosage: FREQUENCY: 3X/DAY,, INTRAVENOUS
     Route: 042
     Dates: start: 20090224, end: 20090225
  3. FLUTICASONE PROPIONATE [Concomitant]
  4. ZOLPIDEM [Concomitant]
  5. ALBUTEROL [Concomitant]
  6. ENOXAPARIN SODIUM [Concomitant]

REACTIONS (3)
  - ASTHMA [None]
  - RASH PRURITIC [None]
  - WHITE BLOOD CELL COUNT INCREASED [None]
